FAERS Safety Report 24170577 (Version 1)
Quarter: 2024Q3

REPORT INFORMATION
  Report Type: Spontaneous
  Country: CH (occurrence: CH)
  Receive Date: 20240803
  Receipt Date: 20240803
  Transmission Date: 20241017
  Serious: Yes (Other)
  Sender: TEVA
  Company Number: None

PATIENT
  Age: 58 Year
  Sex: Female

DRUGS (18)
  1. QUETIAPINE [Suspect]
     Active Substance: QUETIAPINE
     Indication: Product used for unknown indication
     Dosage: QUETIAPINE MEPHA
     Route: 048
     Dates: start: 20230913, end: 20230928
  2. SERTRALINE [Suspect]
     Active Substance: SERTRALINE HYDROCHLORIDE
     Indication: Product used for unknown indication
     Dosage: SERTRALINE MEPHA
     Route: 048
     Dates: start: 20230914, end: 20230920
  3. SERTRALINE [Suspect]
     Active Substance: SERTRALINE HYDROCHLORIDE
     Indication: Product used for unknown indication
     Dosage: SERTRALINE MEPHA
     Route: 048
     Dates: start: 20230921, end: 20230922
  4. SERTRALINE [Suspect]
     Active Substance: SERTRALINE HYDROCHLORIDE
     Indication: Product used for unknown indication
     Dosage: SERTRALINE MEPHA
     Route: 048
     Dates: start: 20230923, end: 20230929
  5. MELATONIN [Concomitant]
     Active Substance: MELATONIN
     Indication: Product used for unknown indication
     Route: 048
  6. MINOXIDIL [Concomitant]
     Active Substance: MINOXIDIL
     Indication: Product used for unknown indication
     Route: 048
  7. LEVOTHYROXINE SODIUM [Concomitant]
     Active Substance: LEVOTHYROXINE SODIUM
     Indication: Product used for unknown indication
     Route: 048
     Dates: start: 20231004
  8. CYSTEINE [Concomitant]
     Active Substance: CYSTEINE
     Indication: Product used for unknown indication
     Route: 048
  9. Vitamin B complex standard [Concomitant]
     Indication: Product used for unknown indication
     Route: 065
  10. MAGNESIUM [Concomitant]
     Active Substance: MAGNESIUM
     Indication: Product used for unknown indication
     Route: 048
     Dates: start: 20230907
  11. Symfona [Concomitant]
     Indication: Product used for unknown indication
     Route: 048
     Dates: start: 20230921
  12. Symfona [Concomitant]
     Indication: Product used for unknown indication
     Route: 048
     Dates: start: 20230907, end: 20230920
  13. Symfona [Concomitant]
     Indication: Product used for unknown indication
     Route: 048
     Dates: end: 20230920
  14. LYSINE [Concomitant]
     Active Substance: LYSINE
     Indication: Product used for unknown indication
     Route: 048
  15. HERBALS [Concomitant]
     Active Substance: HERBALS
     Indication: Product used for unknown indication
     Dosage: 2 DF
     Route: 048
  16. LEVOTHYROXINE SODIUM [Concomitant]
     Active Substance: LEVOTHYROXINE SODIUM
     Indication: Product used for unknown indication
     Route: 048
     Dates: end: 20231003
  17. Calcimagon D3 Forte [Concomitant]
     Indication: Product used for unknown indication
     Dosage: 1000 MG CALCIUM/ 800 IU
     Route: 048
  18. Redormin [Concomitant]
     Indication: Product used for unknown indication
     Route: 048

REACTIONS (2)
  - Electrocardiogram T wave inversion [Recovered/Resolved]
  - N-terminal prohormone brain natriuretic peptide increased [Recovering/Resolving]

NARRATIVE: CASE EVENT DATE: 20230901
